FAERS Safety Report 9138846 (Version 2)
Quarter: 2013Q2

REPORT INFORMATION
  Report Type: Spontaneous
  Country: US (occurrence: US)
  Receive Date: 20130305
  Receipt Date: 20130423
  Transmission Date: 20140414
  Serious: Yes (Disabling)
  Sender: FDA-Public Use
  Company Number: US-PFIZER INC-2012271230

PATIENT
  Age: 66 Year
  Sex: Female
  Weight: 113 kg

DRUGS (6)
  1. CELEBREX [Suspect]
     Indication: RHEUMATOID ARTHRITIS
     Dosage: 200 MG, 2X/DAY
     Route: 048
     Dates: end: 201112
  2. CELEBREX [Suspect]
     Indication: ARTHRITIS
  3. LODINE [Suspect]
     Indication: POLYARTHRITIS
     Dosage: UNK
  4. PANTOPRAZOLE [Concomitant]
     Dosage: UNK
  5. SERTRALINE [Concomitant]
     Dosage: UNK
  6. AMLODIPINE [Concomitant]
     Indication: HYPERTENSION
     Dosage: UNK

REACTIONS (10)
  - Polyarthritis [Not Recovered/Not Resolved]
  - Back pain [Unknown]
  - Pain in extremity [Unknown]
  - Neck pain [Unknown]
  - Musculoskeletal pain [Unknown]
  - Joint swelling [Unknown]
  - Musculoskeletal stiffness [Not Recovered/Not Resolved]
  - Pain in extremity [Not Recovered/Not Resolved]
  - Arthralgia [Not Recovered/Not Resolved]
  - Malaise [Not Recovered/Not Resolved]
